FAERS Safety Report 4532979-1 (Version None)
Quarter: 2004Q4

REPORT INFORMATION
  Report Type: 
  Country: None (occurrence: None)
  Receive Date: 20041221
  Receipt Date: 20040408
  Transmission Date: 20050328
  Serious: Yes (Death, Hospitalization, Other)
  Sender: FDA-Public Use
  Company Number: 200412808US

PATIENT
  Sex: Male

DRUGS (29)
  1. ARAVA [Suspect]
     Indication: RHEUMATOID ARTHRITIS
     Route: 048
     Dates: start: 19991012, end: 20020610
  2. PREDNISONE TAB [Concomitant]
     Indication: RHEUMATOID ARTHRITIS
     Dosage: DOSE: 1-10
     Dates: end: 20010618
  3. CARAFATE [Concomitant]
     Dosage: DOSE: NOT PROVIDED
     Dates: end: 19990317
  4. NAPROSYN [Concomitant]
     Dates: start: 19980801, end: 19990211
  5. RIDAURA [Concomitant]
     Route: 048
     Dates: start: 19980801, end: 19990301
  6. SULFASALAZINE [Concomitant]
     Dates: start: 19980911, end: 19980901
  7. VITAMIN D [Concomitant]
     Dosage: DOSE: 50,000; DOSE UNIT: UNITS
     Dates: end: 19981001
  8. PRILOSEC [Concomitant]
     Dates: end: 19981001
  9. ULTRAM [Concomitant]
  10. CELEBREX [Concomitant]
     Dates: start: 19990202, end: 19990201
  11. ATARAX [Concomitant]
     Dosage: DOSE: NOT PROVIDED
     Dates: start: 19990201
  12. PAXIL [Concomitant]
     Dates: start: 19990401, end: 20000701
  13. MULTIVITAMINS, PLAIN [Concomitant]
     Dosage: DOSE: NOT PROVIDED
  14. TYLENOL (CAPLET) [Concomitant]
     Dosage: DOSE: NOT PROVIDED
     Dates: start: 19981101
  15. CLEMASTINE FUMARATE AND PHENYLPROPANOLAMINE HCL [Concomitant]
     Dosage: DOSE: NOT PROVIDED
  16. METOPROLOL TARTRATE [Concomitant]
     Dosage: DOSE: 1/2
  17. ALTACE [Concomitant]
     Dosage: DOSE: NOT PROVIDED
     Dates: start: 19981101
  18. ECOTRIN [Concomitant]
     Dosage: DOSE: NOT PROVIDED
  19. VIOXX [Concomitant]
     Dates: start: 20010701, end: 20011101
  20. EFFEXOR [Concomitant]
     Dates: start: 20010701, end: 20020601
  21. FLOMAX [Concomitant]
     Dosage: DOSE: NOT PROVIDED
     Dates: start: 20010701
  22. GLUCOTROL XL [Concomitant]
     Dates: end: 20020101
  23. AMITRIPTYLINE HCL [Concomitant]
     Dates: start: 20000301
  24. METAMUCIL-2 [Concomitant]
     Dosage: DOSE: NOT PROVIDED
  25. MULTIVITAMINS, PLAIN [Concomitant]
     Dosage: DOSE: NOT PROVIDED
  26. LEVOXYL [Concomitant]
     Dosage: DOSE: NOT PROVIDED
  27. DOCUSATE [Concomitant]
     Dosage: DOSE: NOT PROVIDED
  28. ALBUTEROL [Concomitant]
     Dosage: DOSE: NOT PROVIDED
  29. ATROVENT [Concomitant]
     Dosage: DOSE: NOT PROVIDED

REACTIONS (26)
  - ABDOMINAL PAIN [None]
  - ANAEMIA [None]
  - ASTHENIA [None]
  - CONSTIPATION [None]
  - COUGH [None]
  - DEATH [None]
  - DECREASED APPETITE [None]
  - DEHYDRATION [None]
  - DIARRHOEA [None]
  - DIVERTICULUM [None]
  - FALL [None]
  - FATIGUE [None]
  - HAEMATOCRIT DECREASED [None]
  - LIVER FUNCTION TEST ABNORMAL [None]
  - MALNUTRITION [None]
  - NAUSEA [None]
  - ORTHOSTATIC HYPOTENSION [None]
  - PNEUMONIA [None]
  - PYREXIA [None]
  - RECTAL HAEMORRHAGE [None]
  - SYNCOPE [None]
  - SYSTOLIC HYPERTENSION [None]
  - URINARY TRACT INFECTION [None]
  - VIRAL INFECTION [None]
  - VOMITING [None]
  - WEIGHT DECREASED [None]
